FAERS Safety Report 8346791-9 (Version None)
Quarter: 2012Q2

REPORT INFORMATION
  Report Type: 
  Country: None (occurrence: None)
  Receive Date: 20120509
  Receipt Date: 20120427
  Transmission Date: 20120825
  Serious: Yes (Other)
  Sender: FDA-Public Use
  Company Number: US-SANOFI-AVENTIS-2012SA030023

PATIENT
  Age: 60 Year
  Sex: Male

DRUGS (2)
  1. LANTUS [Suspect]
     Dosage: DOSE:60 UNIT(S)
     Route: 058
     Dates: start: 20111201
  2. SOLOSTAR [Suspect]
     Dates: start: 20111201

REACTIONS (2)
  - VISUAL IMPAIRMENT [None]
  - EYE SWELLING [None]
